FAERS Safety Report 22631451 (Version 6)
Quarter: 2023Q4

REPORT INFORMATION
  Report Type: Report from Study
  Country: US (occurrence: US)
  Receive Date: 20230623
  Receipt Date: 20231215
  Transmission Date: 20240109
  Serious: Yes (Other)
  Sender: FDA-Public Use
  Company Number: US-002147023-NVSC2023US140315

PATIENT
  Sex: Female

DRUGS (1)
  1. KESIMPTA [Suspect]
     Active Substance: OFATUMUMAB
     Indication: Multiple sclerosis
     Dosage: 20 MG, QMO
     Route: 058
     Dates: start: 2023

REACTIONS (6)
  - Multiple sclerosis relapse [Unknown]
  - Pain [Unknown]
  - Muscle spasticity [Unknown]
  - Gait disturbance [Unknown]
  - Product administration error [Unknown]
  - Therapeutic response shortened [Not Recovered/Not Resolved]
